FAERS Safety Report 7594175-3 (Version None)
Quarter: 2011Q3

REPORT INFORMATION
  Report Type: 
  Country: None (occurrence: None)
  Receive Date: 20110706
  Receipt Date: 20110627
  Transmission Date: 20111222
  Serious: Yes (Hospitalization)
  Sender: FDA-Public Use
  Company Number: PHHY2011JP06729

PATIENT
  Age: 58 Year
  Sex: Male

DRUGS (6)
  1. STEROIDS NOS [Concomitant]
  2. AMPHOTERICIN B [Concomitant]
  3. CYCLOSPORINE [Suspect]
     Indication: BEHCET'S SYNDROME
     Route: 048
  4. ANTIBIOTICS [Concomitant]
  5. FLUOROCYTOSINE [Concomitant]
  6. ADRENOCORTICOTROPHIC HORMONE [Concomitant]
     Indication: BEHCET'S SYNDROME

REACTIONS (11)
  - MENINGITIS CRYPTOCOCCAL [None]
  - DEPRESSED LEVEL OF CONSCIOUSNESS [None]
  - NUCLEAR MAGNETIC RESONANCE IMAGING ABNORMAL [None]
  - CSF CULTURE POSITIVE [None]
  - CENTRAL NERVOUS SYSTEM INFECTION [None]
  - GAIT DISTURBANCE [None]
  - MONOPLEGIA [None]
  - CSF PRESSURE INCREASED [None]
  - MUSCULOSKELETAL STIFFNESS [None]
  - MONOCYTOSIS [None]
  - CRYPTOCOCCOSIS [None]
